FAERS Safety Report 14188189 (Version 1)
Quarter: 2017Q4

REPORT INFORMATION
  Report Type: Spontaneous
  Country: ES (occurrence: ES)
  Receive Date: 20171114
  Receipt Date: 20171114
  Transmission Date: 20180321
  Serious: Yes (Other)
  Sender: FDA-Public Use
  Company Number: PHHY2017ES164929

PATIENT
  Age: 36 Year
  Sex: Male
  Weight: 76 kg

DRUGS (6)
  1. ZEBINIX [Concomitant]
     Active Substance: ESLICARBAZEPINE ACETATE
     Indication: EPILEPSY
     Dosage: 1200 MG, QD (400 MG AT BREAKFAST AND 800 MG AT DINNER)
     Route: 065
     Dates: start: 20110215
  2. VOTUBIA [Suspect]
     Active Substance: EVEROLIMUS
     Indication: ASTROCYTOMA, LOW GRADE
     Dosage: 5 MG, QD
     Route: 065
     Dates: start: 20150901, end: 2016
  3. KEPPRA [Concomitant]
     Active Substance: LEVETIRACETAM
     Indication: EPILEPSY
     Dosage: 500 MG AT BREAKFAST AND 1000 MG AT DINNER
     Route: 065
     Dates: start: 20150105
  4. RIVOTRIL [Concomitant]
     Active Substance: CLONAZEPAM
     Indication: EPILEPSY
     Dosage: 2 MG, QD (0.5 MG BREAKFAST AND LUNCH, 1 MG AT DINNER)
     Route: 065
     Dates: start: 1998
  5. VOTUBIA [Suspect]
     Active Substance: EVEROLIMUS
     Indication: ANGIOMYOLIPOMA
  6. DEPAKINE CRONO [Concomitant]
     Active Substance: VALPROIC ACID
     Indication: EPILEPSY
     Dosage: 500 MG, TID (BREAKFAST , LUNCH AND DINNER)
     Route: 065
     Dates: start: 20030415

REACTIONS (5)
  - Bursitis [Unknown]
  - Arthralgia [Recovering/Resolving]
  - Osteonecrosis [Unknown]
  - Groin pain [Recovering/Resolving]
  - Gait disturbance [Unknown]

NARRATIVE: CASE EVENT DATE: 201601
